FAERS Safety Report 10056837 (Version 1)
Quarter: 2014Q2

REPORT INFORMATION
  Report Type: Spontaneous
  Country: US (occurrence: US)
  Receive Date: 20140403
  Receipt Date: 20140403
  Transmission Date: 20141212
  Serious: Yes (Death, Hospitalization)
  Sender: FDA-Public Use
  Company Number: US-JNJFOC-20140314597

PATIENT
  Age: 40 Year
  Sex: Male

DRUGS (1)
  1. RISPERDAL [Suspect]
     Indication: AGITATION
     Route: 048
     Dates: start: 1999, end: 20091224

REACTIONS (14)
  - Renal failure [Fatal]
  - Intestinal obstruction [Recovered/Resolved]
  - Aggression [Recovered/Resolved]
  - Akathisia [Recovered/Resolved]
  - Fall [Recovered/Resolved]
  - Ankle fracture [Recovered/Resolved]
  - Deep vein thrombosis [Unknown]
  - Aspiration [Recovered/Resolved]
  - Dyspnoea [Recovered/Resolved]
  - International normalised ratio abnormal [Unknown]
  - Dementia Alzheimer^s type [Not Recovered/Not Resolved]
  - Weight increased [Not Recovered/Not Resolved]
  - Aphagia [Recovered/Resolved]
  - Drug dose omission [Recovered/Resolved]
